FAERS Safety Report 9455273 (Version 1)
Quarter: 2013Q3

REPORT INFORMATION
  Report Type: Spontaneous
  Country: US (occurrence: US)
  Receive Date: 20130813
  Receipt Date: 20130813
  Transmission Date: 20140515
  Serious: Yes (Hospitalization)
  Sender: FDA-Public Use
  Company Number: US-BAYER-2013-096441

PATIENT
  Age: 43 Year
  Sex: Female

DRUGS (7)
  1. YASMIN [Suspect]
     Indication: HOT FLUSH
  2. YASMIN [Suspect]
     Indication: MENOPAUSE
  3. SYNTHROID [Concomitant]
     Indication: HYPOTHYROIDISM
  4. IBUPROFEN [Concomitant]
  5. FLEXERIL [Concomitant]
  6. DOCUSATE [Concomitant]
  7. LEVOTHYROXINE [Concomitant]

REACTIONS (2)
  - Deep vein thrombosis [Recovering/Resolving]
  - Pelvic venous thrombosis [Recovering/Resolving]
